FAERS Safety Report 6848184-X (Version None)
Quarter: 2010Q3

REPORT INFORMATION
  Report Type: 
  Country: None (occurrence: None)
  Receive Date: 20100716
  Receipt Date: 20100706
  Transmission Date: 20110219
  Serious: Yes (Death, Hospitalization, Disabling)
  Sender: FDA-Public Use
  Company Number: B0648700A

PATIENT
  Sex: Male

DRUGS (12)
  1. ALKERAN [Suspect]
     Dosage: 280MG CUMULATIVE DOSE
     Route: 042
     Dates: start: 20070829, end: 20070901
  2. BLEOMYCIN [Suspect]
     Dosage: 80MG CUMULATIVE DOSE
     Route: 042
     Dates: start: 20070417, end: 20070530
  3. MABTHERA [Suspect]
     Dosage: 4500MG CUMULATIVE DOSE
     Route: 042
     Dates: start: 20070417, end: 20070808
  4. DOXORUBICIN HCL [Suspect]
     Dosage: 600MG CUMULATIVE DOSE
     Route: 042
     Dates: start: 20070417, end: 20070530
  5. CYCLOPHOSPHAMIDE [Suspect]
     Dosage: 9600MG CUMULATIVE DOSE
     Route: 042
     Dates: start: 20070417, end: 20070530
  6. ELDISINE [Suspect]
     Dosage: 32MG CUMULATIVE DOSE
     Route: 042
     Dates: start: 20070417, end: 20070530
  7. METHOTREXATE [Suspect]
     Dosage: 11970MG CUMULATIVE DOSE
     Route: 042
     Dates: start: 20070627, end: 20070711
  8. ETOPOPHOS PRESERVATIVE FREE [Suspect]
     Dosage: 1200MG CUMULATIVE DOSE
     Route: 042
     Dates: start: 20070725, end: 20070808
  9. HOLOXAN [Suspect]
     Dosage: 6000MG CUMULATIVE DOSE
     Route: 042
     Dates: start: 20070725, end: 20070808
  10. BICNU [Suspect]
     Dosage: 600MG CUMULATIVE DOSE
     Route: 042
     Dates: start: 20070829, end: 20070901
  11. CYTARABINE [Suspect]
     Dosage: 1600MG CUMULATIVE DOSE
     Route: 042
     Dates: start: 20070829, end: 20070901
  12. ETOPOSIDE [Suspect]
     Dosage: 1600MG CUMULATIVE DOSE
     Route: 042
     Dates: start: 20070829, end: 20070901

REACTIONS (11)
  - ASPERGILLOSIS [None]
  - CYTOMEGALOVIRUS TEST POSITIVE [None]
  - DYSPNOEA EXERTIONAL [None]
  - HAEMODYNAMIC INSTABILITY [None]
  - HYPOXIA [None]
  - INFLUENZA A VIRUS TEST POSITIVE [None]
  - LUNG INFILTRATION [None]
  - PNEUMOCYSTIS JIROVECI PNEUMONIA [None]
  - PULMONARY FIBROSIS [None]
  - RESPIRATORY ACIDOSIS [None]
  - RESPIRATORY FAILURE [None]
